FAERS Safety Report 5827804-2 (Version None)
Quarter: 2008Q3

REPORT INFORMATION
  Report Type: 
  Country: None (occurrence: None)
  Receive Date: 20080730
  Receipt Date: 20080721
  Transmission Date: 20090109
  Serious: Yes (Hospitalization, Other)
  Sender: FDA-Public Use
  Company Number: US-MERCK-0806USA03444

PATIENT
  Age: 39 Year
  Sex: Male
  Weight: 49 kg

DRUGS (8)
  1. ISENTRESS [Suspect]
     Indication: HIV INFECTION
     Route: 048
     Dates: start: 20080208, end: 20080609
  2. TRUVADA [Concomitant]
     Indication: HIV INFECTION
     Route: 048
     Dates: start: 20080208
  3. PREZISTA [Concomitant]
     Route: 048
     Dates: start: 20080208
  4. BIAXIN [Concomitant]
     Route: 065
  5. DAPSONE [Concomitant]
     Route: 065
  6. ATRIPLA [Concomitant]
     Indication: HIV INFECTION
     Route: 048
     Dates: start: 20071029, end: 20080208
  7. INTELENCE [Concomitant]
     Indication: HIV INFECTION
     Route: 048
     Dates: start: 20080614
  8. NORVIR [Concomitant]
     Indication: HIV INFECTION
     Route: 048
     Dates: start: 20080208

REACTIONS (5)
  - BLOOD CREATININE INCREASED [None]
  - HYPERCALCAEMIA [None]
  - MYCOBACTERIUM AVIUM COMPLEX INFECTION [None]
  - RASH [None]
  - RENAL FAILURE ACUTE [None]
